FAERS Safety Report 11231871 (Version 1)
Quarter: 2015Q2

REPORT INFORMATION
  Report Type: Spontaneous
  Country: US (occurrence: None)
  Receive Date: 20150630
  Receipt Date: 20150630
  Transmission Date: 20150821
  Serious: Yes (Hospitalization)
  Sender: FDA-Public Use
  Company Number: None

PATIENT
  Age: 49 Year
  Sex: Female
  Weight: 34.93 kg

DRUGS (12)
  1. BACTRIM [Concomitant]
     Active Substance: SULFAMETHOXAZOLE\TRIMETHOPRIM
  2. LIDODERM [Concomitant]
     Active Substance: LIDOCAINE
  3. ZOMETA [Concomitant]
     Active Substance: ZOLEDRONIC ACID
  4. PROCHLOPERAZINE [Concomitant]
  5. VELCADE [Suspect]
     Active Substance: BORTEZOMIB
     Indication: PLASMA CELL MYELOMA
     Dosage: WEEKLY 3 OF 4 WEEK
     Route: 058
     Dates: start: 20150424, end: 20150626
  6. ACYCLOVIR. [Concomitant]
     Active Substance: ACYCLOVIR
  7. MSIR [Concomitant]
     Active Substance: MORPHINE SULFATE
  8. VITAMIN D [Concomitant]
     Active Substance: CHOLECALCIFEROL
  9. MORPHINE SULFATE. [Concomitant]
     Active Substance: MORPHINE SULFATE
  10. CALCIUM [Concomitant]
     Active Substance: CALCIUM
  11. ELOTUZUMAB [Suspect]
     Active Substance: ELOTUZUMAB
     Indication: PLASMA CELL MYELOMA
     Route: 042
     Dates: start: 20150424, end: 20150619
  12. ELOTUZUMAB [Suspect]
     Active Substance: ELOTUZUMAB
     Indication: NEOPLASM RECURRENCE
     Route: 042
     Dates: start: 20150424, end: 20150619

REACTIONS (2)
  - Anaemia [None]
  - Back pain [None]

NARRATIVE: CASE EVENT DATE: 20150627
